FAERS Safety Report 6032535-2 (Version None)
Quarter: 2009Q1

REPORT INFORMATION
  Report Type: 
  Country: None (occurrence: None)
  Receive Date: 20090109
  Receipt Date: 20081205
  Transmission Date: 20090719
  Serious: Yes (Disabling, Other)
  Sender: FDA-Public Use
  Company Number: A0759316A

PATIENT
  Sex: Female

DRUGS (5)
  1. TYKERB [Suspect]
     Indication: DRUG USE FOR UNKNOWN INDICATION
     Dosage: 1000MG PER DAY
     Route: 048
  2. HERCEPTIN [Concomitant]
  3. TAXOTERE [Concomitant]
  4. GEMZAR [Concomitant]
  5. EPO [Concomitant]

REACTIONS (1)
  - DIARRHOEA [None]
